FAERS Safety Report 6070292-4 (Version None)
Quarter: 2009Q1

REPORT INFORMATION
  Report Type: 
  Country: None (occurrence: None)
  Receive Date: 20090209
  Receipt Date: 20090202
  Transmission Date: 20090719
  Serious: Yes (Hospitalization)
  Sender: FDA-Public Use
  Company Number: US-ABBOTT-09P-163-0501129-00

PATIENT
  Sex: Male
  Weight: 108.96 kg

DRUGS (24)
  1. HUMIRA [Suspect]
     Indication: COLITIS ULCERATIVE
     Route: 058
     Dates: start: 20081113
  2. AMBIEN CR [Concomitant]
     Indication: INSOMNIA
     Route: 048
  3. ATENOLOL [Concomitant]
     Indication: HYPERTENSION
     Route: 048
  4. ATENOLOL [Concomitant]
     Route: 048
  5. CYMBALTA [Concomitant]
     Indication: DEPRESSION
     Route: 048
  6. FLEXERIL [Concomitant]
     Indication: MUSCLE SPASMS
     Route: 048
  7. FERROUS SULPHATE [Concomitant]
     Indication: ANAEMIA
     Dosage: UNKNOWN
     Route: 048
  8. GLIPIZDE [Concomitant]
     Indication: TYPE 1 DIABETES MELLITUS
     Route: 048
  9. MAG-OX [Concomitant]
     Indication: OSTEOPOROSIS
     Route: 048
  10. SULFASALAZINE [Concomitant]
     Indication: COLITIS
     Dosage: 4000 MG DAILY
     Route: 048
  11. CALCIUM + VITAMIN D [Concomitant]
     Indication: OSTEOPOROSIS
     Route: 048
  12. VITAMIN B-12 [Concomitant]
     Indication: MEDICAL DIET
     Route: 048
  13. DIGOXIN [Concomitant]
     Indication: ATRIAL FIBRILLATION
     Route: 048
  14. DILTIZAM CD [Concomitant]
     Indication: HYPERTENSION
     Route: 048
  15. LYRICA [Concomitant]
     Indication: NEUROPATHY PERIPHERAL
     Route: 048
  16. MULTI-VITAMINS [Concomitant]
     Indication: MEDICAL DIET
     Route: 048
  17. FOLIC ACID [Concomitant]
     Indication: MEDICAL DIET
     Route: 048
  18. LEXAPRO [Concomitant]
     Indication: DEPRESSION
     Route: 048
  19. OXYCODONE HCL [Concomitant]
     Indication: PAIN
     Dosage: EVERY 4 HOURS AS NEEDED
     Route: 048
  20. OXYCONTIN [Concomitant]
     Indication: PAIN
     Dosage: 80 MG- NINE DAILY
     Route: 048
  21. LANTUS [Concomitant]
     Indication: TYPE 1 DIABETES MELLITUS
     Route: 058
  22. INSULIN PEN [Concomitant]
     Indication: TYPE 1 DIABETES MELLITUS
     Dosage: SLIDING SCALE AS NEEDED
     Route: 058
  23. PREDNISONE [Concomitant]
     Indication: COLITIS ULCERATIVE
     Route: 048
  24. PROTONIX [Concomitant]
     Indication: GASTROOESOPHAGEAL REFLUX DISEASE
     Route: 048

REACTIONS (4)
  - ABDOMINAL DISTENSION [None]
  - ABDOMINAL PAIN UPPER [None]
  - BRONCHITIS [None]
  - WEIGHT INCREASED [None]
